FAERS Safety Report 7432875-6 (Version None)
Quarter: 2011Q2

REPORT INFORMATION
  Report Type: 
  Country: None (occurrence: None)
  Receive Date: 20110422
  Receipt Date: 20110413
  Transmission Date: 20111010
  Serious: Yes (Hospitalization, Other)
  Sender: FDA-Public Use
  Company Number: US-ASTRAZENECA-2011SE21074

PATIENT
  Age: 57 Year
  Sex: Female

DRUGS (3)
  1. NEXIUM [Suspect]
     Route: 048
  2. CRESTOR [Concomitant]
  3. PANTOPRAZOLE SODIUM [Suspect]
     Route: 065

REACTIONS (10)
  - GASTROOESOPHAGEAL REFLUX DISEASE [None]
  - HERNIA [None]
  - CEREBROVASCULAR ACCIDENT [None]
  - ABDOMINAL PAIN UPPER [None]
  - DRUG DOSE OMISSION [None]
  - HAEMATEMESIS [None]
  - CRYING [None]
  - MYOCARDIAL INFARCTION [None]
  - SLEEP DISORDER DUE TO A GENERAL MEDICAL CONDITION [None]
  - INSOMNIA [None]
